FAERS Safety Report 10238295 (Version 1)
Quarter: 2014Q2

REPORT INFORMATION
  Report Type: Spontaneous
  Country: US (occurrence: US)
  Receive Date: 20140616
  Receipt Date: 20140616
  Transmission Date: 20141212
  Serious: No
  Sender: FDA-Public Use
  Company Number: US-PFIZER INC-2014161216

PATIENT
  Age: 44 Year
  Sex: Female
  Weight: 63.49 kg

DRUGS (5)
  1. AVINZA [Suspect]
     Indication: MIGRAINE
     Dosage: 90 MG, DAILY
     Dates: start: 2007, end: 201402
  2. VALIUM [Concomitant]
     Dosage: UNK, AS NEEDED
  3. LORTAB [Concomitant]
     Dosage: UNK, AS NEEDED
  4. IBUPROFEN [Concomitant]
     Dosage: UNK
  5. BUTALBITAL, ACETAMINOPHEN + CAFFEINE [Concomitant]
     Dosage: UNK

REACTIONS (2)
  - Nodule [Unknown]
  - Pain in extremity [Unknown]
